FAERS Safety Report 6105549-1 (Version None)
Quarter: 2009Q1

REPORT INFORMATION
  Report Type: 
  Country: None (occurrence: None)
  Receive Date: 20090306
  Receipt Date: 20090304
  Transmission Date: 20090719
  Serious: Yes (Other)
  Sender: FDA-Public Use
  Company Number: B0563539A

PATIENT
  Age: 83 Year
  Sex: Female
  Weight: 89 kg

DRUGS (7)
  1. RYTMONORMA [Suspect]
     Indication: ATRIAL FIBRILLATION
     Dates: start: 20070220
  2. SEROPRAM [Concomitant]
  3. BERODUAL [Concomitant]
  4. LASIX [Concomitant]
  5. SELOKEN [Concomitant]
  6. ASPIRIN [Concomitant]
  7. THYREX [Concomitant]

REACTIONS (1)
  - ELECTROCARDIOGRAM QT PROLONGED [None]
